FAERS Safety Report 5630689-0 (Version None)
Quarter: 2008Q1

REPORT INFORMATION
  Report Type: 
  Country: None (occurrence: None)
  Receive Date: 20080219
  Receipt Date: 20080208
  Transmission Date: 20080703
  Serious: Yes (Other)
  Sender: FDA-Public Use
  Company Number: US-MERCK-0801USA06138

PATIENT
  Age: 17 Year
  Sex: Female

DRUGS (2)
  1. MAXALT [Suspect]
     Indication: MIGRAINE
     Route: 048
     Dates: start: 20080101, end: 20080101
  2. TOPAMAX [Concomitant]
     Route: 065

REACTIONS (1)
  - CONVULSION [None]
